FAERS Safety Report 24176406 (Version 1)
Quarter: 2024Q3

REPORT INFORMATION
  Report Type: Report from Study
  Country: US (occurrence: None)
  Receive Date: 20240806
  Receipt Date: 20240806
  Transmission Date: 20241016
  Serious: Yes (Hospitalization, Other)
  Sender: ASTRAZENECA
  Company Number: 2023A025941

PATIENT
  Sex: Male

DRUGS (1)
  1. CALQUENCE [Suspect]
     Active Substance: ACALABRUTINIB
     Indication: Chronic lymphocytic leukaemia
     Route: 048
     Dates: start: 202205

REACTIONS (4)
  - Arthralgia [Unknown]
  - Blood sodium increased [Recovered/Resolved]
  - Gastrointestinal obstruction [Unknown]
  - Intestinal dilatation [Unknown]
